FAERS Safety Report 10471318 (Version 5)
Quarter: 2015Q4

REPORT INFORMATION
  Report Type: Spontaneous
  Country: IS (occurrence: IS)
  Receive Date: 20140923
  Receipt Date: 20151216
  Transmission Date: 20160304
  Serious: Yes (Life-Threatening, Hospitalization)
  Sender: FDA-Public Use
  Company Number: IS-PFIZER INC-2014258078

PATIENT
  Age: 66 Year
  Sex: Male
  Weight: 81 kg

DRUGS (6)
  1. DOXAZOSIN [Concomitant]
     Active Substance: DOXAZOSIN\DOXAZOSIN MESYLATE
     Indication: ARRHYTHMIA
     Dosage: 40 MG, 1X/DAY
     Route: 048
  2. ATENOLOL. [Concomitant]
     Active Substance: ATENOLOL
     Indication: HYPERTENSION
     Dosage: 25 MG, 1X/DAY
     Route: 048
  3. INLYTA [Suspect]
     Active Substance: AXITINIB
     Indication: METASTATIC RENAL CELL CARCINOMA
     Dosage: 3 MG, 2X/DAY
     Route: 048
     Dates: start: 20120414, end: 20140709
  4. ADALAT [Concomitant]
     Active Substance: NIFEDIPINE
     Indication: HYPERTENSION
     Dosage: 60 MG, 1X/DAY
     Route: 048
  5. LOPRESS [Concomitant]
     Indication: HYPERTENSION
     Dosage: 125 MG, 1X/DAY
     Route: 048
  6. LEVAXIN [Concomitant]
     Active Substance: LEVOTHYROXINE SODIUM
     Indication: HYPERTHYROIDISM
     Dosage: 0.1 MG, 1X/DAY
     Route: 048

REACTIONS (3)
  - Coronary artery thrombosis [Recovering/Resolving]
  - Cardiac failure chronic [Recovering/Resolving]
  - Myocardial infarction [Recovering/Resolving]

NARRATIVE: CASE EVENT DATE: 20140629
